FAERS Safety Report 15835687 (Version 1)
Quarter: 2019Q1

REPORT INFORMATION
  Report Type: Spontaneous
  Country: US (occurrence: US)
  Receive Date: 20190117
  Receipt Date: 20190117
  Transmission Date: 20190417
  Serious: No
  Sender: FDA-Public Use
  Company Number: US-AMGEN-USASP2019005072

PATIENT

DRUGS (2)
  1. PARSABIV [Concomitant]
     Active Substance: ETELCALCETIDE HYDROCHLORIDE
  2. SENSIPAR [Suspect]
     Active Substance: CINACALCET HYDROCHLORIDE
     Indication: BLOOD PARATHYROID HORMONE INCREASED
     Dosage: UNK
     Route: 065

REACTIONS (1)
  - Drug intolerance [Recovered/Resolved]
